FAERS Safety Report 9110500 (Version 2)
Quarter: 2013Q3

REPORT INFORMATION
  Report Type: Spontaneous
  Country: US (occurrence: US)
  Receive Date: 20130222
  Receipt Date: 20130716
  Transmission Date: 20140515
  Serious: Yes (Other)
  Sender: FDA-Public Use
  Company Number: US-RB-050191-13

PATIENT
  Age: 36 Year
  Sex: Female

DRUGS (5)
  1. SUBOXONE FILM [Suspect]
     Indication: DRUG DEPENDENCE
     Dosage: SUBOXONE FILM
     Route: 060
     Dates: start: 20121201, end: 20130122
  2. SUBOXONE FILM [Suspect]
     Dosage: SUBOXONE FILM
     Route: 060
     Dates: start: 20130123, end: 2013
  3. SUBOXONE FILM [Suspect]
     Dosage: SUBOXONE FILM; TAKING MORE THAN PRESCRIBED (UNIT DOSE 8 MG INSTEAD OF 2 MG PRESCRIBED)
     Route: 060
  4. SUBOXONE FILM [Suspect]
     Dosage: SUBOXONE FILM; TAPERED DOWN TO 2 MG THEN STOPPED; CUTTING TO ACHIEVE DOSING
     Route: 060
     Dates: end: 201306
  5. XANAX [Concomitant]
     Indication: ANXIETY
     Dosage: DOSING DETAILS UNKNOWN
     Route: 048

REACTIONS (9)
  - Suicidal ideation [Recovered/Resolved]
  - Diarrhoea [Not Recovered/Not Resolved]
  - Wrong technique in drug usage process [Recovered/Resolved]
  - Drug withdrawal syndrome [Not Recovered/Not Resolved]
  - Feeling abnormal [Not Recovered/Not Resolved]
  - Drug dispensing error [Recovered/Resolved]
  - Overdose [Recovered/Resolved]
  - Feeling abnormal [Not Recovered/Not Resolved]
  - Feeling of body temperature change [Not Recovered/Not Resolved]
